FAERS Safety Report 8366298-2 (Version None)
Quarter: 2012Q2

REPORT INFORMATION
  Report Type: 
  Country: None (occurrence: None)
  Receive Date: 20120517
  Receipt Date: 20120511
  Transmission Date: 20120825
  Serious: Yes (Other)
  Sender: FDA-Public Use
  Company Number: PHEH2012US010061

PATIENT
  Sex: Female

DRUGS (1)
  1. AFINITOR [Suspect]
     Dosage: UNK
     Route: 048
     Dates: start: 20120103

REACTIONS (3)
  - LYMPHADENOPATHY [None]
  - FATIGUE [None]
  - LUNG NEOPLASM [None]
